FAERS Safety Report 7782834-9 (Version None)
Quarter: 2011Q3

REPORT INFORMATION
  Report Type: 
  Country: None (occurrence: None)
  Receive Date: 20110928
  Receipt Date: 20110926
  Transmission Date: 20111222
  Serious: Yes (Life-Threatening)
  Sender: FDA-Public Use
  Company Number: GB-B.I. PHARMACEUTICALS,INC./RIDGEFIELD-2011-UK-01018UK

PATIENT
  Age: 70 Year
  Sex: Male
  Weight: 69 kg

DRUGS (8)
  1. ASPIRIN [Concomitant]
  2. SOLIFENACIN SUCCINATE [Concomitant]
  3. SPIRIVA [Suspect]
     Indication: CHRONIC OBSTRUCTIVE PULMONARY DISEASE
     Dosage: 2 ANZ
     Route: 055
     Dates: start: 20110310, end: 20110909
  4. TAMSULOSIN HCL [Concomitant]
  5. OMEPRAZOLE [Concomitant]
  6. METHOTREXATE [Concomitant]
  7. ALENDRONATE SODIUM [Concomitant]
  8. PREDNISOLONE [Concomitant]

REACTIONS (2)
  - ATRIAL FIBRILLATION [None]
  - MYOCARDIAL INFARCTION [None]
